FAERS Safety Report 14193045 (Version 5)
Quarter: 2018Q3

REPORT INFORMATION
  Report Type: Report from Study
  Country: JP (occurrence: JP)
  Receive Date: 20171115
  Receipt Date: 20180705
  Transmission Date: 20181010
  Serious: Yes (Death, Hospitalization, Disabling, Other)
  Sender: FDA-Public Use
  Company Number: PHJP2017JP033382

PATIENT
  Age: 79 Year
  Sex: Male

DRUGS (32)
  1. RESTAMIN [Concomitant]
     Active Substance: DIPHENHYDRAMINE
     Indication: PREMEDICATION
     Dosage: 10 MG, UNK
     Route: 048
     Dates: start: 20170331, end: 20170331
  2. ARZERRA [Suspect]
     Active Substance: OFATUMUMAB
     Dosage: 2000 MG, QD
     Route: 041
     Dates: start: 20170414, end: 20170414
  3. ARZERRA [Suspect]
     Active Substance: OFATUMUMAB
     Dosage: 2000 MG, QD
     Route: 041
     Dates: start: 20170718, end: 20170718
  4. PREDNISOLONE. [Concomitant]
     Active Substance: PREDNISOLONE
     Dosage: 100 MG, UNK
     Route: 065
     Dates: start: 20170919, end: 20170919
  5. ACETAMINOPHEN. [Concomitant]
     Active Substance: ACETAMINOPHEN
     Dosage: 100 MG, QD
     Route: 065
     Dates: start: 20170407, end: 20170407
  6. ACETAMINOPHEN. [Concomitant]
     Active Substance: ACETAMINOPHEN
     Dosage: 100 MG, QD
     Route: 065
     Dates: start: 20170414, end: 20170414
  7. PREDNISOLONE. [Concomitant]
     Active Substance: PREDNISOLONE
     Dosage: 100 MG, UNK
     Route: 065
     Dates: start: 20170620, end: 20170620
  8. ARZERRA [Suspect]
     Active Substance: OFATUMUMAB
     Indication: CHRONIC LYMPHOCYTIC LEUKAEMIA
     Dosage: 300 MG, QD
     Route: 041
     Dates: start: 20170331, end: 20170331
  9. ARZERRA [Suspect]
     Active Substance: OFATUMUMAB
     Dosage: 2000 MG, QD
     Route: 041
     Dates: start: 20170421, end: 20170421
  10. ARZERRA [Suspect]
     Active Substance: OFATUMUMAB
     Dosage: 2000 MG, QD
     Route: 041
     Dates: start: 20170509, end: 20170509
  11. ARZERRA [Suspect]
     Active Substance: OFATUMUMAB
     Dosage: 2000 MG, QD
     Route: 041
     Dates: start: 20170516, end: 20170516
  12. PREDNISOLONE. [Concomitant]
     Active Substance: PREDNISOLONE
     Dosage: 100 MG, UNK
     Route: 065
     Dates: start: 20170421, end: 20170421
  13. ACETAMINOPHEN. [Concomitant]
     Active Substance: ACETAMINOPHEN
     Indication: PREMEDICATION
     Dosage: 100 MG, QD
     Route: 065
     Dates: start: 20170331, end: 20170331
  14. ARZERRA [Suspect]
     Active Substance: OFATUMUMAB
     Dosage: 2000 MG, QD
     Route: 041
     Dates: start: 20170822, end: 20170822
  15. IMBRUVICA [Suspect]
     Active Substance: IBRUTINIB
     Dosage: 280 MG, UNK
     Route: 048
  16. PREDNISOLONE. [Concomitant]
     Active Substance: PREDNISOLONE
     Dosage: 100 MG, UNK
     Route: 065
     Dates: start: 20170407, end: 20170407
  17. ARZERRA [Suspect]
     Active Substance: OFATUMUMAB
     Dosage: 2000 MG, QD
     Route: 041
     Dates: start: 20170620, end: 20170620
  18. PREDNISOLONE. [Concomitant]
     Active Substance: PREDNISOLONE
     Indication: PREMEDICATION
     Dosage: 40 MG, UNK
     Route: 065
     Dates: start: 20170117, end: 20170214
  19. PREDNISOLONE. [Concomitant]
     Active Substance: PREDNISOLONE
     Dosage: 100 MG, UNK
     Route: 065
     Dates: start: 20170509, end: 20170509
  20. ARZERRA [Suspect]
     Active Substance: OFATUMUMAB
     Dosage: 2000 MG, QD
     Route: 041
     Dates: start: 20170407, end: 20170407
  21. ARZERRA [Suspect]
     Active Substance: OFATUMUMAB
     Dosage: 2000 MG, QD
     Route: 041
     Dates: start: 20170428, end: 20170428
  22. ARZERRA [Suspect]
     Active Substance: OFATUMUMAB
     Dosage: 2000 MG, QD
     Route: 041
     Dates: start: 20170523, end: 20170523
  23. ARZERRA [Suspect]
     Active Substance: OFATUMUMAB
     Dosage: 2000 MG, QD
     Route: 041
     Dates: start: 20170919, end: 20170919
  24. IMBRUVICA [Suspect]
     Active Substance: IBRUTINIB
     Indication: CHRONIC LYMPHOCYTIC LEUKAEMIA
     Dosage: 420 MG, QD
     Route: 048
     Dates: start: 20161013, end: 20170116
  25. PREDNISOLONE. [Concomitant]
     Active Substance: PREDNISOLONE
     Dosage: 100 MG, UNK
     Route: 065
     Dates: start: 20170331, end: 20170331
  26. PREDNISOLONE. [Concomitant]
     Active Substance: PREDNISOLONE
     Dosage: 100 MG, UNK
     Route: 065
     Dates: start: 20170523, end: 20170523
  27. PREDNISOLONE. [Concomitant]
     Active Substance: PREDNISOLONE
     Dosage: 100 MG, UNK
     Route: 065
     Dates: start: 20170718, end: 20170718
  28. PREDNISOLONE. [Concomitant]
     Active Substance: PREDNISOLONE
     Dosage: 100 MG, UNK
     Route: 065
     Dates: start: 20170822, end: 20170822
  29. PREDNISOLONE. [Concomitant]
     Active Substance: PREDNISOLONE
     Dosage: 100 MG, UNK
     Route: 065
     Dates: start: 20170414, end: 20170414
  30. PREDNISOLONE. [Concomitant]
     Active Substance: PREDNISOLONE
     Dosage: 100 MG, UNK
     Route: 065
     Dates: start: 20170428, end: 20170428
  31. PREDNISOLONE. [Concomitant]
     Active Substance: PREDNISOLONE
     Dosage: 100 MG, UNK
     Route: 065
     Dates: start: 20170516, end: 20170516
  32. RESTAMIN [Concomitant]
     Active Substance: DIPHENHYDRAMINE
     Dosage: 10 MG, UNK
     Route: 048
     Dates: start: 20170407, end: 20170407

REACTIONS (12)
  - Decreased activity [Fatal]
  - Poverty of speech [Fatal]
  - Subdural haematoma [Unknown]
  - Cognitive disorder [Fatal]
  - Haemoglobin decreased [Unknown]
  - White matter lesion [Fatal]
  - Concomitant disease aggravated [Unknown]
  - Eating disorder [Fatal]
  - White blood cell count decreased [Unknown]
  - Cerebral infarction [Unknown]
  - Progressive multifocal leukoencephalopathy [Fatal]
  - Disorientation [Fatal]

NARRATIVE: CASE EVENT DATE: 20170421
